FAERS Safety Report 10637336 (Version 3)
Quarter: 2014Q4

REPORT INFORMATION
  Report Type: Report from Study
  Country: FR (occurrence: FR)
  Receive Date: 20141208
  Receipt Date: 20141222
  Transmission Date: 20150529
  Serious: Yes (Hospitalization, Disabling, Other)
  Sender: FDA-Public Use
  Company Number: FR-JNJFOC-20140510118

PATIENT
  Age: 65 Year
  Sex: Male
  Weight: 65 kg

DRUGS (16)
  1. XARELTO [Suspect]
     Active Substance: RIVAROXABAN
     Indication: CEREBROVASCULAR ACCIDENT PROPHYLAXIS
     Route: 048
     Dates: start: 20140218, end: 20141009
  2. XARELTO [Suspect]
     Active Substance: RIVAROXABAN
     Indication: CEREBROVASCULAR ACCIDENT PROPHYLAXIS
     Route: 048
     Dates: start: 20131113, end: 20140214
  3. AMIODARONE [Concomitant]
     Active Substance: AMIODARONE
     Route: 065
     Dates: start: 20131120, end: 20131122
  4. INEXIUM [Concomitant]
     Active Substance: ESOMEPRAZOLE
     Route: 065
     Dates: start: 20131113
  5. KARDEGIC [Concomitant]
     Active Substance: ASPIRIN LYSINE
     Route: 065
     Dates: start: 20141031
  6. HALDOL DECANOATE [Concomitant]
     Active Substance: HALOPERIDOL DECANOATE
     Route: 065
  7. AMIODARONE [Concomitant]
     Active Substance: AMIODARONE
     Route: 065
     Dates: start: 20131125
  8. CELECTOL [Concomitant]
     Active Substance: CELIPROLOL HYDROCHLORIDE
     Route: 065
     Dates: start: 2010, end: 20131112
  9. CALCIPARINE [Concomitant]
     Active Substance: HEPARIN CALCIUM
     Indication: CEREBROVASCULAR ACCIDENT PROPHYLAXIS
     Route: 065
     Dates: start: 20140215, end: 20140218
  10. FLECAINE [Concomitant]
     Active Substance: FLECAINIDE
     Route: 065
     Dates: start: 2006, end: 20131112
  11. CORGARD [Concomitant]
     Active Substance: NADOLOL
     Route: 065
     Dates: start: 20131113, end: 20131120
  12. ASPIRIN. [Concomitant]
     Active Substance: ASPIRIN
     Dates: start: 20141009, end: 20141031
  13. XARELTO [Suspect]
     Active Substance: RIVAROXABAN
     Indication: ATRIAL FIBRILLATION
     Route: 048
     Dates: start: 20140218, end: 20141009
  14. CALCIPARINE [Concomitant]
     Active Substance: HEPARIN CALCIUM
     Indication: CARDIAC ABLATION
     Route: 065
     Dates: start: 20140215, end: 20140218
  15. XARELTO [Suspect]
     Active Substance: RIVAROXABAN
     Indication: ATRIAL FIBRILLATION
     Route: 048
     Dates: start: 20131113, end: 20140214
  16. AMIODARONE [Concomitant]
     Active Substance: AMIODARONE
     Route: 065
     Dates: start: 20131123, end: 20131124

REACTIONS (5)
  - Aortic stenosis [Recovering/Resolving]
  - Atrial fibrillation [Recovered/Resolved]
  - Chest pain [Not Recovered/Not Resolved]
  - Dyspnoea [Recovered/Resolved]
  - Atrial flutter [Recovered/Resolved]

NARRATIVE: CASE EVENT DATE: 20131118
